FAERS Safety Report 10041954 (Version 2)
Quarter: 2014Q1

REPORT INFORMATION
  Report Type: Spontaneous
  Country: US (occurrence: US)
  Receive Date: 20140327
  Receipt Date: 20140327
  Transmission Date: 20141002
  Serious: No
  Sender: FDA-Public Use
  Company Number: US-ENDO PHARMACEUTICALS INC.-PMDM20130003

PATIENT
  Age: 2 Year
  Sex: Male

DRUGS (1)
  1. PROMETHAZINE DM [Suspect]
     Indication: NASOPHARYNGITIS
     Dosage: 12.5/30/0.14 MG
     Route: 048
     Dates: start: 20130912, end: 20130918

REACTIONS (1)
  - Urinary retention [Not Recovered/Not Resolved]
